FAERS Safety Report 8616083-9 (Version None)
Quarter: 2012Q3

REPORT INFORMATION
  Report Type: 
  Country: None (occurrence: None)
  Receive Date: 20120823
  Receipt Date: 20120817
  Transmission Date: 20120928
  Serious: Yes (Other)
  Sender: FDA-Public Use
  Company Number: US-PFIZER INC-2012202496

PATIENT
  Sex: Female

DRUGS (2)
  1. GLUCOTROL XL [Suspect]
     Dosage: UNK
  2. GLUCOTROL [Suspect]
     Indication: DIABETES MELLITUS
     Dosage: 5 MG, 1X/DAY
     Route: 048
     Dates: start: 20100101

REACTIONS (4)
  - MEDICATION RESIDUE [None]
  - WRONG TECHNIQUE IN DRUG USAGE PROCESS [None]
  - MALABSORPTION [None]
  - BLOOD GLUCOSE INCREASED [None]
